FAERS Safety Report 11552651 (Version 8)
Quarter: 2017Q1

REPORT INFORMATION
  Report Type: Report from Study
  Country: CA (occurrence: CA)
  Receive Date: 20150925
  Receipt Date: 20170327
  Transmission Date: 20170428
  Serious: Yes (Hospitalization, Other)
  Sender: FDA-Public Use
  Company Number: CA-ROCHE-1556746

PATIENT
  Age: 50 Year
  Sex: Female

DRUGS (17)
  1. DIPHENHYDRAMINE HCL [Concomitant]
     Active Substance: DIPHENHYDRAMINE HYDROCHLORIDE
     Indication: PREMEDICATION
     Route: 048
     Dates: start: 20150325
  2. SPIRIVA [Concomitant]
     Active Substance: TIOTROPIUM BROMIDE MONOHYDRATE
  3. SALBUTAMOL [Concomitant]
     Active Substance: ALBUTEROL
  4. RITUXAN [Suspect]
     Active Substance: RITUXIMAB
     Indication: RHEUMATOID ARTHRITIS
     Dosage: DAY 1 AND 15, LAST INFUSION OF RITUXIMAB ON 09/APR/2015?LAST INFUSION: 01/DEC/2016
     Route: 042
     Dates: start: 20150325
  5. AAS [Concomitant]
     Active Substance: ASPIRIN
  6. FOLIC ACID. [Concomitant]
     Active Substance: FOLIC ACID
  7. CORTISONE [Suspect]
     Active Substance: CORTISONE\HYDROCORTISONE
     Indication: PRODUCT USED FOR UNKNOWN INDICATION
     Route: 065
  8. SYNTHROID [Concomitant]
     Active Substance: LEVOTHYROXINE SODIUM
  9. NAPROXEN. [Concomitant]
     Active Substance: NAPROXEN
  10. OMEPRAZOLE. [Concomitant]
     Active Substance: OMEPRAZOLE
  11. ACETAMINOPHEN. [Concomitant]
     Active Substance: ACETAMINOPHEN
     Indication: PREMEDICATION
     Route: 048
     Dates: start: 20150325
  12. METHYLPREDNISOLONE. [Concomitant]
     Active Substance: METHYLPREDNISOLONE
     Indication: PREMEDICATION
     Route: 042
     Dates: start: 20150325
  13. CALCITE [Concomitant]
     Active Substance: CALCIUM CARBONATE
  14. PLAQUENIL [Concomitant]
     Active Substance: HYDROXYCHLOROQUINE SULFATE
  15. METHOTREXATE. [Concomitant]
     Active Substance: METHOTREXATE
  16. SSZ [Concomitant]
     Active Substance: SULFASALAZINE
  17. AAS [Concomitant]
     Active Substance: ASPIRIN

REACTIONS (6)
  - Infusion related reaction [Recovered/Resolved]
  - Labyrinthitis [Recovered/Resolved]
  - Bronchitis [Not Recovered/Not Resolved]
  - Weight increased [Not Recovered/Not Resolved]
  - Oedema peripheral [Not Recovered/Not Resolved]
  - Oral mucosal discolouration [Unknown]

NARRATIVE: CASE EVENT DATE: 20150325
